FAERS Safety Report 18654892 (Version 1)
Quarter: 2020Q4

REPORT INFORMATION
  Report Type: Spontaneous
  Country: US (occurrence: US)
  Receive Date: 20201223
  Receipt Date: 20201223
  Transmission Date: 20210114
  Serious: Yes (Hospitalization)
  Sender: FDA-Public Use
  Company Number: None

PATIENT
  Age: 67 Year
  Sex: Male
  Weight: 59.5 kg

DRUGS (3)
  1. CEFTRIAXONE. [Concomitant]
     Active Substance: CEFTRIAXONE
     Dates: start: 20201214, end: 20201216
  2. CEFDINIR. [Concomitant]
     Active Substance: CEFDINIR
     Dates: start: 20201216
  3. BAMLANIVIMAB. [Suspect]
     Active Substance: BAMLANIVIMAB
     Indication: COVID-19
     Dosage: ?          OTHER FREQUENCY:ONCE;?
     Route: 042
     Dates: start: 20201210

REACTIONS (7)
  - Fatigue [None]
  - Asthenia [None]
  - Pulmonary congestion [None]
  - Hypophagia [None]
  - Streptococcus test positive [None]
  - Impaired healing [None]
  - Blood glucose decreased [None]

NARRATIVE: CASE EVENT DATE: 20201212
